FAERS Safety Report 9644560 (Version 3)
Quarter: 2013Q4

REPORT INFORMATION
  Report Type: Spontaneous
  Country: BR (occurrence: BR)
  Receive Date: 20131025
  Receipt Date: 20131205
  Transmission Date: 20140711
  Serious: Yes (Other)
  Sender: FDA-Public Use
  Company Number: BR-JNJFOC-20131012748

PATIENT
  Age: 53 Year
  Sex: Female
  Weight: 53.7 kg

DRUGS (9)
  1. SIMPONI [Suspect]
     Indication: CROHN^S DISEASE
     Route: 058
     Dates: start: 20130827
  2. SIMPONI [Suspect]
     Indication: CROHN^S DISEASE
     Route: 058
     Dates: start: 201310
  3. SIMPONI [Suspect]
     Indication: RHEUMATOID ARTHRITIS
     Route: 058
     Dates: start: 20130827
  4. SIMPONI [Suspect]
     Indication: RHEUMATOID ARTHRITIS
     Route: 058
     Dates: start: 201310
  5. DEFLAZACORT [Concomitant]
     Indication: RHEUMATOID ARTHRITIS
     Route: 065
  6. MESALAMINE [Concomitant]
     Indication: CROHN^S DISEASE
     Route: 065
  7. TAPAZOL [Concomitant]
     Indication: HYPERTHYROIDISM
     Route: 065
  8. VITAMIN B + D [Concomitant]
     Indication: ARTHRITIS
     Route: 065
  9. ACETYLSALICYLIC ACID [Concomitant]
     Route: 065

REACTIONS (6)
  - Ischaemic stroke [Recovering/Resolving]
  - Systemic sclerosis [Unknown]
  - Therapeutic response decreased [Unknown]
  - Inappropriate schedule of drug administration [Not Recovered/Not Resolved]
  - Incorrect product storage [Not Recovered/Not Resolved]
  - Off label use [Not Recovered/Not Resolved]
